FAERS Safety Report 5960938-0 (Version None)
Quarter: 2008Q4

REPORT INFORMATION
  Report Type: 
  Country: None (occurrence: None)
  Receive Date: 20081119
  Receipt Date: 20081103
  Transmission Date: 20090506
  Serious: Yes (Hospitalization)
  Sender: FDA-Public Use
  Company Number: 8039149

PATIENT
  Age: 26 Year
  Sex: Male
  Weight: 48 kg

DRUGS (6)
  1. KEPPRA [Suspect]
     Dosage: 10 ML 2/D TBD
     Dates: start: 20080601, end: 20081031
  2. KEPPRA [Suspect]
     Dosage: 15 ML 2/D PO
     Route: 048
     Dates: start: 20081031
  3. DILANTIN [Concomitant]
  4. . [Concomitant]
  5. TEGRETOL [Concomitant]
  6. PHENOBARBITAL TAB [Concomitant]

REACTIONS (2)
  - GRAND MAL CONVULSION [None]
  - PRODUCT QUALITY ISSUE [None]
